FAERS Safety Report 5959273-6 (Version None)
Quarter: 2008Q4

REPORT INFORMATION
  Report Type: 
  Country: None (occurrence: None)
  Receive Date: 20081120
  Receipt Date: 20081110
  Transmission Date: 20090506
  Serious: Yes (Disabling)
  Sender: FDA-Public Use
  Company Number: GB-ALLERGAN-0813914US

PATIENT
  Sex: Female
  Weight: 54 kg

DRUGS (2)
  1. COMBIGAN [Suspect]
     Indication: ANGLE CLOSURE GLAUCOMA
     Dosage: 1 DF, BID
     Route: 047
     Dates: start: 20080901
  2. LUMIGAN [Concomitant]
     Indication: DRUG USE FOR UNKNOWN INDICATION

REACTIONS (4)
  - FATIGUE [None]
  - INSOMNIA [None]
  - MALAISE [None]
  - TINNITUS [None]
